FAERS Safety Report 22642288 (Version 1)
Quarter: 2023Q2

REPORT INFORMATION
  Report Type: Spontaneous
  Country: None (occurrence: US)
  Receive Date: 20230626
  Receipt Date: 20230626
  Transmission Date: 20230722
  Serious: No
  Sender: FDA-Public Use
  Company Number: US-Nexgen Pharma, Inc.-2143138

PATIENT
  Age: 41 Year
  Sex: Male

DRUGS (3)
  1. CHENODAL [Suspect]
     Active Substance: CHENODIOL
     Indication: Lipoprotein metabolism disorder
     Route: 048
     Dates: start: 20100123
  2. FENOFIBRATE [Concomitant]
     Active Substance: FENOFIBRATE
     Route: 065
  3. PRAVASTATIN SODIUM [Concomitant]
     Active Substance: PRAVASTATIN SODIUM
     Route: 065

REACTIONS (2)
  - Drug ineffective [Not Recovered/Not Resolved]
  - Xanthoma [None]
